FAERS Safety Report 10815348 (Version 1)
Quarter: 2015Q1

REPORT INFORMATION
  Report Type: Report from Study
  Country: TW (occurrence: TW)
  Receive Date: 20150218
  Receipt Date: 20150218
  Transmission Date: 20150721
  Serious: Yes (Hospitalization)
  Sender: FDA-Public Use
  Company Number: TW-ACTELION-A-CH2015-113059

PATIENT
  Age: 48 Year
  Sex: Female

DRUGS (8)
  1. MACITENTAN [Suspect]
     Active Substance: MACITENTAN
     Indication: PULMONARY ARTERIAL HYPERTENSION
     Dosage: 10 MG, OD
     Route: 048
  2. REMODULIN [Concomitant]
     Active Substance: TREPROSTINIL
     Indication: PULMONARY ARTERIAL HYPERTENSION
     Dosage: 43 ?G/KG, PER MIN
  3. LANOXIN [Concomitant]
     Active Substance: DIGOXIN
     Dosage: 0.25 UNK, UNK
     Route: 048
  4. EXELDERM [Concomitant]
     Active Substance: SULCONAZOLE NITRATE
     Route: 061
  5. ALDACTIN [Concomitant]
     Dosage: 25 UNK, BID
     Route: 048
  6. COMPESOLON [Concomitant]
     Dosage: 10 UNK, QD
     Route: 048
  7. SILDENAFIL. [Concomitant]
     Active Substance: SILDENAFIL
     Indication: PULMONARY ARTERIAL HYPERTENSION
     Dosage: 20 UNK, TID
     Route: 048
  8. BOKEY [Concomitant]
     Dosage: 100 UNK, QD
     Route: 048

REACTIONS (2)
  - Dyspnoea [Recovered/Resolved]
  - Confusional state [Recovered/Resolved]

NARRATIVE: CASE EVENT DATE: 20150118
